FAERS Safety Report 7205189-7 (Version None)
Quarter: 2010Q4

REPORT INFORMATION
  Report Type: 
  Country: None (occurrence: None)
  Receive Date: 20101231
  Receipt Date: 20101223
  Transmission Date: 20110411
  Serious: Yes (Hospitalization, Other)
  Sender: FDA-Public Use
  Company Number: US-BIOGENIDEC-2010BI044209

PATIENT
  Sex: Male

DRUGS (1)
  1. AVONEX [Suspect]
     Indication: MULTIPLE SCLEROSIS
     Route: 030
     Dates: start: 20040103

REACTIONS (6)
  - ATRIAL SEPTAL DEFECT [None]
  - CEREBROVASCULAR ACCIDENT [None]
  - INJECTION SITE HAEMORRHAGE [None]
  - MULTIPLE SCLEROSIS [None]
  - THROMBOSIS [None]
  - TRANSIENT ISCHAEMIC ATTACK [None]
